FAERS Safety Report 6937679-6 (Version None)
Quarter: 2010Q3

REPORT INFORMATION
  Report Type: 
  Country: None (occurrence: None)
  Receive Date: 20100820
  Receipt Date: 20100820
  Transmission Date: 20110219
  Serious: Yes (Other)
  Sender: FDA-Public Use
  Company Number: None

PATIENT
  Age: 78 Year
  Sex: Female
  Weight: 68.4932 kg

DRUGS (1)
  1. LEVAQUIN [Suspect]
     Indication: SINUSITIS
     Dates: start: 20100804, end: 20100814

REACTIONS (5)
  - ARTHRALGIA [None]
  - BURSITIS [None]
  - JOINT EFFUSION [None]
  - JOINT SWELLING [None]
  - TENDONITIS [None]
